FAERS Safety Report 6732829-9 (Version None)
Quarter: 2010Q2

REPORT INFORMATION
  Report Type: 
  Country: None (occurrence: None)
  Receive Date: 20100519
  Receipt Date: 20100511
  Transmission Date: 20101027
  Serious: Yes (Hospitalization, Other)
  Sender: FDA-Public Use
  Company Number: US-AMGEN-US244987

PATIENT
  Sex: Female
  Weight: 66.3 kg

DRUGS (7)
  1. PROCRIT [Suspect]
     Indication: RENAL FAILURE CHRONIC
     Dates: end: 20100329
  2. COLCHICINE [Concomitant]
  3. PHOSLO [Concomitant]
  4. TRAMADOL HCL [Concomitant]
  5. CARTIA XT [Concomitant]
  6. DIOVAN [Concomitant]
  7. SODIUM BICARBONATE [Concomitant]

REACTIONS (10)
  - ACINETOBACTER INFECTION [None]
  - ANAEMIA [None]
  - ANTI-ERYTHROPOIETIN ANTIBODY POSITIVE [None]
  - APLASIA PURE RED CELL [None]
  - BLOOD PRODUCT TRANSFUSION DEPENDENT [None]
  - BRONCHITIS [None]
  - DRUG INEFFECTIVE [None]
  - SEPSIS [None]
  - SHUNT INFECTION [None]
  - UNRESPONSIVE TO STIMULI [None]
